FAERS Safety Report 6089711-2 (Version None)
Quarter: 2009Q1

REPORT INFORMATION
  Report Type: 
  Country: None (occurrence: None)
  Receive Date: 20090220
  Receipt Date: 20090220
  Transmission Date: 20090719
  Serious: Yes (Life-Threatening, Hospitalization)
  Sender: FDA-Public Use
  Company Number: None

PATIENT
  Sex: Female
  Weight: 124.7392 kg

DRUGS (10)
  1. BACTRIM DS [Suspect]
     Indication: ANTIFUNGAL PROPHYLAXIS
     Dosage: 1 TABLET DAILY PO
     Route: 048
     Dates: start: 20090125, end: 20090205
  2. SULFAMETHAZOLE/TRIMETHOPRIM [Concomitant]
  3. PREDNISONE [Concomitant]
  4. CYCLOSPORINE [Concomitant]
  5. VALCYTE [Concomitant]
  6. REGLAN [Concomitant]
  7. OMEPRAZOLE [Concomitant]
  8. KLOR-CON [Concomitant]
  9. DIFLUCAN [Concomitant]
  10. MAGOX [Concomitant]

REACTIONS (6)
  - BURNS SECOND DEGREE [None]
  - DYSPHAGIA [None]
  - EYE DISORDER [None]
  - GRAFT VERSUS HOST DISEASE [None]
  - MUCOSAL INFLAMMATION [None]
  - TOXIC EPIDERMAL NECROLYSIS [None]
